FAERS Safety Report 7767040-6 (Version None)
Quarter: 2011Q3

REPORT INFORMATION
  Report Type: 
  Country: None (occurrence: None)
  Receive Date: 20110922
  Receipt Date: 20100301
  Transmission Date: 20111222
  Serious: No
  Sender: FDA-Public Use
  Company Number: US-ASTRAZENECA-2010SE53283

PATIENT
  Age: 488 Month

DRUGS (4)
  1. MEPROZINE [Concomitant]
     Dosage: 50/25
     Dates: start: 20031118
  2. SEROQUEL [Suspect]
     Route: 048
     Dates: start: 20031002
  3. TOPAMAX [Concomitant]
     Dates: start: 20030928
  4. PAXIL CR [Concomitant]
     Dates: start: 20030928

REACTIONS (8)
  - MIGRAINE [None]
  - GASTROOESOPHAGEAL REFLUX DISEASE [None]
  - UTERINE DISORDER [None]
  - CONVERSION DISORDER [None]
  - ASTHMA [None]
  - GALLBLADDER DISORDER [None]
  - CARPAL TUNNEL SYNDROME [None]
  - BREAST DISORDER [None]
